FAERS Safety Report 5296276-1 (Version None)
Quarter: 2007Q2

REPORT INFORMATION
  Report Type: 
  Country: None (occurrence: None)
  Receive Date: 20070413
  Receipt Date: 20070402
  Transmission Date: 20071010
  Serious: Yes (Hospitalization)
  Sender: FDA-Public Use
  Company Number: PHEH2007US03869

PATIENT
  Age: 54 Year
  Sex: Female
  Weight: 86.167 kg

DRUGS (11)
  1. ZELNORM [Suspect]
     Indication: CONSTIPATION
     Dosage: 6 MG, BID
     Route: 048
     Dates: start: 20050101, end: 20070331
  2. PLAVIX [Concomitant]
     Dosage: 75 MG, QD
     Dates: start: 20050201
  3. ASPIRIN [Concomitant]
     Dosage: 2 (81MG) QD
     Dates: start: 20050201
  4. ASPIRIN [Concomitant]
     Dosage: 81 MG, QD
  5. LEXAPRO [Concomitant]
     Indication: ANXIETY
     Dosage: 30 MG, QD
     Dates: start: 20020101
  6. PREVACID [Concomitant]
     Indication: GASTROOESOPHAGEAL REFLUX DISEASE
     Dosage: 30 MG, QD
     Dates: start: 19970101
  7. VYTORIN [Concomitant]
     Indication: BLOOD CHOLESTEROL INCREASED
     Dosage: 10/40 QD
     Dates: start: 20050101
  8. DIOVAN HCT [Concomitant]
     Indication: HYPERTENSION
     Dosage: 160/12.5MG QD
     Dates: start: 20040101
  9. KLOR-CON [Concomitant]
     Dosage: 10 MEQ, 3 TABS TID
     Dates: start: 20020101
  10. TRICOR [Concomitant]
     Indication: BLOOD CHOLESTEROL INCREASED
     Dosage: 145 MG, QD
     Dates: start: 20040101
  11. LEVOXYL [Concomitant]
     Indication: HYPOTHYROIDISM
     Dosage: 75 MG, QD
     Dates: start: 20040101

REACTIONS (5)
  - ANGIOPLASTY [None]
  - CHEST PAIN [None]
  - COLD SWEAT [None]
  - DYSPNOEA [None]
  - MYOCARDIAL INFARCTION [None]
